FAERS Safety Report 11297023 (Version 1)
Quarter: 2015Q3

REPORT INFORMATION
  Report Type: Spontaneous
  Country: US (occurrence: US)
  Receive Date: 20150722
  Receipt Date: 20150722
  Transmission Date: 20151125
  Serious: No
  Sender: FDA-Public Use
  Company Number: US-ELI_LILLY_AND_COMPANY-US201011000233

PATIENT
  Age: 62 Year
  Sex: Female

DRUGS (7)
  1. LISINOPRIL. [Concomitant]
     Active Substance: LISINOPRIL
     Dosage: 10 MG, DAILY (1/D)
  2. ASPIRIN. [Concomitant]
     Active Substance: ASPIRIN
     Dosage: 325 MG, UNKNOWN
  3. ASPIRIN. [Concomitant]
     Active Substance: ASPIRIN
     Dosage: 81 MG, DAILY (1/D)
  4. EFFIENT [Suspect]
     Active Substance: PRASUGREL HYDROCHLORIDE
     Indication: STENT PLACEMENT
     Dosage: 1 D/F, UNK
  5. EFFIENT [Suspect]
     Active Substance: PRASUGREL HYDROCHLORIDE
     Dosage: 10 MG, UNKNOWN
  6. LIPITOR [Concomitant]
     Active Substance: ATORVASTATIN CALCIUM
     Dosage: 20 MG, EACH EVENING
  7. METOPROLOL [Concomitant]
     Active Substance: METOPROLOL
     Dosage: 50 MG, DAILY (1/D)

REACTIONS (1)
  - Contusion [Recovered/Resolved]
